FAERS Safety Report 14240377 (Version 1)
Quarter: 2017Q4

REPORT INFORMATION
  Report Type: Spontaneous
  Country: US (occurrence: US)
  Receive Date: 20171129
  Receipt Date: 20171129
  Transmission Date: 20180321
  Serious: Yes (Life-Threatening, Disabling)
  Sender: FDA-Public Use
  Company Number: None

PATIENT
  Age: 57 Year
  Sex: Male
  Weight: 57.6 kg

DRUGS (3)
  1. LANTUS [Suspect]
     Active Substance: INSULIN GLARGINE
     Indication: DIABETES MELLITUS
     Dosage: ?          QUANTITY:100 UNITS;?
     Route: 058
     Dates: end: 20171129
  2. PRAVASTAEN [Concomitant]
  3. LYSINAPROL [Concomitant]

REACTIONS (1)
  - Product availability issue [None]

NARRATIVE: CASE EVENT DATE: 20171103
